FAERS Safety Report 22356180 (Version 1)
Quarter: 2023Q2

REPORT INFORMATION
  Report Type: Other
  Country: None (occurrence: US)
  Receive Date: 20230523
  Receipt Date: 20230523
  Transmission Date: 20230722
  Serious: Yes (Other)
  Sender: FDA-Public Use
  Company Number: US-Appco Pharma LLC-2141910

PATIENT
  Sex: Female

DRUGS (1)
  1. ACETAZOLAMIDE [Suspect]
     Active Substance: ACETAZOLAMIDE
     Indication: Idiopathic intracranial hypertension
     Route: 065

REACTIONS (2)
  - Drug intolerance [Unknown]
  - Drug ineffective [Unknown]
